FAERS Safety Report 9819075 (Version 1)
Quarter: 2014Q1

REPORT INFORMATION
  Report Type: Spontaneous
  Country: US (occurrence: None)
  Receive Date: 20140114
  Receipt Date: 20140114
  Transmission Date: 20141002
  Serious: Yes (Hospitalization)
  Sender: FDA-Public Use
  Company Number: None

PATIENT
  Age: 14 Year
  Sex: Female
  Weight: 59.4 kg

DRUGS (3)
  1. DAUNORUBICIN [Suspect]
     Dates: end: 20140103
  2. PREDNISONE [Suspect]
     Dates: end: 20130106
  3. VINCRISTINE SULFATE [Suspect]
     Dates: end: 20140103

REACTIONS (9)
  - Nausea [None]
  - Vomiting [None]
  - Pyrexia [None]
  - Hyperphosphataemia [None]
  - Hyperuricaemia [None]
  - Hypocalcaemia [None]
  - Renal impairment [None]
  - Haemodialysis [None]
  - Blood lactate dehydrogenase increased [None]
